FAERS Safety Report 23228545 (Version 2)
Quarter: 2023Q4

REPORT INFORMATION
  Report Type: Report from Study
  Country: US (occurrence: US)
  Receive Date: 20231125
  Receipt Date: 20231201
  Transmission Date: 20240109
  Serious: Yes (Other)
  Sender: FDA-Public Use
  Company Number: US-AstraZeneca-CH-00514809A

PATIENT

DRUGS (1)
  1. SOLIRIS [Suspect]
     Active Substance: ECULIZUMAB
     Indication: Myasthenia gravis
     Dosage: UNK
     Route: 065

REACTIONS (2)
  - Cardiac failure [Unknown]
  - COVID-19 [Not Recovered/Not Resolved]

NARRATIVE: CASE EVENT DATE: 20231120
